FAERS Safety Report 17990940 (Version 1)
Quarter: 2020Q3

REPORT INFORMATION
  Report Type: Spontaneous
  Country: CO (occurrence: CO)
  Receive Date: 20200707
  Receipt Date: 20200707
  Transmission Date: 20201103
  Serious: Yes (Life-Threatening, Hospitalization, Other)
  Sender: FDA-Public Use
  Company Number: CO-BAYER-2020-135640

PATIENT
  Age: 55 Year
  Sex: Female
  Weight: 60 kg

DRUGS (1)
  1. ULTRAVIST [Suspect]
     Active Substance: IOPROMIDE
     Indication: COMPUTERISED TOMOGRAM ABDOMEN
     Dosage: 60 ML, ONCE
     Route: 042
     Dates: start: 20200701, end: 20200701

REACTIONS (11)
  - Hypotension [Recovering/Resolving]
  - Bronchospasm [Recovering/Resolving]
  - Dysphonia [Recovering/Resolving]
  - Anaphylactic shock [Recovering/Resolving]
  - Respiratory distress [Recovering/Resolving]
  - Discomfort [Recovering/Resolving]
  - Stridor [Recovering/Resolving]
  - Laryngospasm [Recovering/Resolving]
  - Tachycardia [Recovering/Resolving]
  - Metabolic acidosis [Recovering/Resolving]
  - Throat irritation [Recovering/Resolving]

NARRATIVE: CASE EVENT DATE: 20200701
